FAERS Safety Report 14494726 (Version 1)
Quarter: 2018Q1

REPORT INFORMATION
  Report Type: Spontaneous
  Country: FR (occurrence: FR)
  Receive Date: 20180206
  Receipt Date: 20180206
  Transmission Date: 20180509
  Serious: Yes (Hospitalization)
  Sender: FDA-Public Use
  Company Number: FR-MYLANLABS-2018M1007812

PATIENT
  Age: 46 Year
  Sex: Male
  Weight: 88 kg

DRUGS (5)
  1. FLUOROURACIL. [Suspect]
     Active Substance: FLUOROURACIL
     Indication: COLORECTAL CANCER METASTATIC
     Dosage: ON 17/JAN/2017 (CYCLE 9) AT THE DOSE OF 6400 MG/M2.
     Route: 065
  2. CALCIUM LEVOFOLINATE [Suspect]
     Active Substance: LEVOLEUCOVORIN CALCIUM
     Indication: COLORECTAL CANCER METASTATIC
     Dosage: ON 17/JAN/2017 (CYCLE 9) AT THE DOSE OF 100 MG/M2.
     Route: 065
  3. IRINOTECAN [Suspect]
     Active Substance: IRINOTECAN
     Indication: COLORECTAL CANCER METASTATIC
     Dosage: ON 05/JAN/2017 (CYCLE 7) AT THE DOSE OF 165 MG/M2.
     Route: 065
  4. OXALIPLATIN. [Suspect]
     Active Substance: OXALIPLATIN
     Indication: COLORECTAL CANCER METASTATIC
     Dosage: ON 20/DEC/2016 (CYCLE 8) AT THE DOSE OF 85 MG/M2.
     Route: 065
  5. AVASTIN [Suspect]
     Active Substance: BEVACIZUMAB
     Indication: COLORECTAL CANCER METASTATIC
     Route: 065

REACTIONS (2)
  - Thrombosis [Recovered/Resolved]
  - Portal vein embolisation [Recovered/Resolved]

NARRATIVE: CASE EVENT DATE: 20170124
